FAERS Safety Report 9507961 (Version 2)
Quarter: 2013Q3

REPORT INFORMATION
  Report Type: Spontaneous
  Country: NO (occurrence: None)
  Receive Date: 20130905
  Receipt Date: 20130912
  Transmission Date: 20140515
  Serious: Yes (Hospitalization, Other)
  Sender: FDA-Public Use
  Company Number: SYM-2013-10232

PATIENT
  Age: 38 Year
  Sex: Male

DRUGS (1)
  1. ZYBAN (BUPROPION HYDROCHLORIDE) [Suspect]
     Indication: SMOKING CESSATION THERAPY
     Dosage: 2 TABLET ORAL
     Dates: start: 20130321, end: 20130321

REACTIONS (8)
  - Muscle spasms [None]
  - Loss of consciousness [None]
  - Confusional state [None]
  - Tachycardia [None]
  - Blood creatinine increased [None]
  - White blood cell count increased [None]
  - C-reactive protein increased [None]
  - Blood pressure systolic increased [None]
